FAERS Safety Report 11285203 (Version 2)
Quarter: 2015Q3

REPORT INFORMATION
  Report Type: Spontaneous
  Country: US (occurrence: US)
  Receive Date: 20150720
  Receipt Date: 20150811
  Transmission Date: 20151125
  Serious: No
  Sender: FDA-Public Use
  Company Number: US-009507513-1507USA007020

PATIENT
  Sex: Male

DRUGS (1)
  1. ASMANEX [Suspect]
     Active Substance: MOMETASONE FUROATE
     Indication: COUGH
     Dosage: 2 PUFFS ONCE A DAY, ON AND OFF AT UNSPECIFIED TIMES
     Route: 055
     Dates: start: 2005

REACTIONS (2)
  - Product quality issue [Unknown]
  - Product use issue [Unknown]
